FAERS Safety Report 14821099 (Version 1)
Quarter: 2018Q2

REPORT INFORMATION
  Report Type: Spontaneous
  Country: US (occurrence: US)
  Receive Date: 20180403
  Receipt Date: 20180403
  Transmission Date: 20180711
  Serious: No
  Sender: FDA-Public Use
  Company Number: None

PATIENT
  Age: 77 Year
  Sex: Female
  Weight: 61.2 kg

DRUGS (10)
  1. LISINOPRIL. [Concomitant]
     Active Substance: LISINOPRIL
  2. ACYCLOVIR. [Concomitant]
     Active Substance: ACYCLOVIR
  3. GABAPENTIN. [Concomitant]
     Active Substance: GABAPENTIN
  4. DULOXETINE. [Concomitant]
     Active Substance: DULOXETINE
  5. MULTIVITAMIN [Concomitant]
     Active Substance: VITAMINS
  6. OXYCODONE [Concomitant]
     Active Substance: OXYCODONE
  7. ZOMETA [Concomitant]
     Active Substance: ZOLEDRONIC ACID
  8. CYCLOPHOSPHAMIDE. [Suspect]
     Active Substance: CYCLOPHOSPHAMIDE
     Indication: PLASMA CELL MYELOMA
     Dosage: 3 DAYS ON, 1 WKOFF?
     Route: 048
     Dates: start: 20180301, end: 20180402
  9. FENTANYL. [Concomitant]
     Active Substance: FENTANYL
  10. POTASSIUM CHLORIDE. [Concomitant]
     Active Substance: POTASSIUM CHLORIDE

REACTIONS (1)
  - Disease progression [None]

NARRATIVE: CASE EVENT DATE: 20180402
